FAERS Safety Report 5071572-1 (Version None)
Quarter: 2006Q3

REPORT INFORMATION
  Report Type: 
  Country: None (occurrence: None)
  Receive Date: 20060714
  Receipt Date: 20060601
  Transmission Date: 20061208
  Serious: No
  Sender: FDA-Public Use
  Company Number: 2006SP002293

PATIENT
  Age: 41 Year
  Sex: Male
  Weight: 78.4723 kg

DRUGS (4)
  1. LUNESTA [Suspect]
     Indication: INSOMNIA
     Dosage: 3 MG;ORAL
     Route: 048
     Dates: start: 20060531
  2. ZOLOFT [Concomitant]
  3. VALIUM [Concomitant]
  4. UNISOM [Concomitant]

REACTIONS (3)
  - DIZZINESS [None]
  - INITIAL INSOMNIA [None]
  - SOMNOLENCE [None]
